FAERS Safety Report 13290582 (Version 3)
Quarter: 2017Q2

REPORT INFORMATION
  Report Type: Spontaneous
  Country: US (occurrence: US)
  Receive Date: 20170303
  Receipt Date: 20170511
  Transmission Date: 20170830
  Serious: No
  Sender: FDA-Public Use
  Company Number: US-TEVA-744302ACC

PATIENT
  Age: 59 Year
  Sex: Female

DRUGS (6)
  1. CYANOCOBALAMINE [Concomitant]
     Active Substance: CYANOCOBALAMIN
  2. GLIPIZIDE. [Concomitant]
     Active Substance: GLIPIZIDE
  3. COPAXONE [Suspect]
     Active Substance: GLATIRAMER ACETATE
     Indication: MULTIPLE SCLEROSIS
     Route: 058
     Dates: start: 20151029
  4. ALPRAZOLAM. [Concomitant]
     Active Substance: ALPRAZOLAM
  5. BACLOFEN. [Concomitant]
     Active Substance: BACLOFEN
  6. METFORMIN [Concomitant]
     Active Substance: METFORMIN HYDROCHLORIDE

REACTIONS (2)
  - Fall [Unknown]
  - Dysgraphia [Unknown]

NARRATIVE: CASE EVENT DATE: 201612
